FAERS Safety Report 25289721 (Version 2)
Quarter: 2025Q2

REPORT INFORMATION
  Report Type: Spontaneous
  Country: CN (occurrence: CN)
  Receive Date: 20250509
  Receipt Date: 20250509
  Transmission Date: 20250716
  Serious: Yes (Death, Hospitalization, Other)
  Sender: ASTELLAS
  Company Number: CN-ASTELLAS-2025-AER-024434

PATIENT
  Age: 85 Year
  Sex: Male
  Weight: 93 kg

DRUGS (3)
  1. PADCEV [Suspect]
     Active Substance: ENFORTUMAB VEDOTIN-EJFV
     Indication: Ureteric cancer
     Route: 065
     Dates: start: 20250419
  2. PADCEV [Suspect]
     Active Substance: ENFORTUMAB VEDOTIN-EJFV
     Route: 065
     Dates: start: 20250427, end: 20250507
  3. KEYTRUDA [Suspect]
     Active Substance: PEMBROLIZUMAB
     Indication: Ureteric cancer
     Route: 065
     Dates: start: 20250419

REACTIONS (7)
  - Death [Fatal]
  - Toxic epidermal necrolysis [Not Recovered/Not Resolved]
  - Eosinophilic cellulitis [Unknown]
  - Dermatitis infected [Unknown]
  - Ketoacidosis [Unknown]
  - Renal failure [Unknown]
  - Somnolence [Unknown]

NARRATIVE: CASE EVENT DATE: 20250425
